FAERS Safety Report 15784278 (Version 1)
Quarter: 2019Q1

REPORT INFORMATION
  Report Type: Spontaneous
  Country: JP (occurrence: JP)
  Receive Date: 20190103
  Receipt Date: 20190103
  Transmission Date: 20190417
  Serious: Yes (Other)
  Sender: FDA-Public Use
  Company Number: JP-ROCHE-2238703

PATIENT
  Age: 72 Year
  Sex: Male
  Weight: 64 kg

DRUGS (18)
  1. CLARITIN REDITABS [Concomitant]
     Active Substance: LORATADINE
     Dosage: DOSAGE IS UNCERTAIN.
     Route: 065
  2. KERATINAMIN KOWA [Concomitant]
     Dosage: DOSAGE IS UNCERTAIN.
     Route: 003
  3. XELODA [Suspect]
     Active Substance: CAPECITABINE
     Indication: GASTRIC CANCER
     Route: 048
     Dates: start: 20150911
  4. BELSOMRA [Concomitant]
     Active Substance: SUVOREXANT
     Dosage: DOSAGE IS UNCERTAIN.
     Route: 048
  5. XELODA [Suspect]
     Active Substance: CAPECITABINE
     Route: 048
     Dates: start: 20160428
  6. DECADRON [Concomitant]
     Active Substance: DEXAMETHASONE
     Dosage: DOSAGE IS UNCERTAIN.
     Route: 048
  7. LYRICA [Concomitant]
     Active Substance: PREGABALIN
     Dosage: DOSAGE IS UNCERTAIN.
     Route: 048
  8. HERCEPTIN [Suspect]
     Active Substance: TRASTUZUMAB
     Indication: GASTRIC CANCER
     Dosage: DOSE INTERVAL UNCERTAINTY
     Route: 041
  9. FLUITRAN [Concomitant]
     Active Substance: TRICHLORMETHIAZIDE
     Dosage: DOSAGE IS UNCERTAIN.
     Route: 048
  10. OXALIPLATIN. [Concomitant]
     Active Substance: OXALIPLATIN
     Indication: GASTRIC CANCER
     Dosage: DOSAGE IS UNCERTAIN.
     Route: 041
  11. FLUNITRAZEPAM [Concomitant]
     Active Substance: FLUNITRAZEPAM
     Dosage: DOSAGE IS UNCERTAIN.
     Route: 048
  12. ALLEGRA [Concomitant]
     Active Substance: FEXOFENADINE HYDROCHLORIDE
     Dosage: DOSAGE IS UNCERTAIN.
     Route: 048
  13. NEXIUM [Concomitant]
     Active Substance: ESOMEPRAZOLE MAGNESIUM
     Dosage: DOSAGE IS UNCERTAIN.
     Route: 048
  14. CELECOX [Concomitant]
     Active Substance: CELECOXIB
     Dosage: DOSAGE IS UNCERTAIN.
     Route: 048
  15. SUMILU STICK [Concomitant]
     Dosage: DOSAGE IS UNCERTAIN.
     Route: 065
  16. TRAMCET [Concomitant]
     Active Substance: ACETAMINOPHEN\TRAMADOL
     Dosage: DOSAGE IS UNCERTAIN.
     Route: 048
  17. XELODA [Suspect]
     Active Substance: CAPECITABINE
     Route: 048
     Dates: start: 20181220
  18. MAINTATE [Concomitant]
     Active Substance: BISOPROLOL FUMARATE
     Dosage: DOSAGE IS UNCERTAIN.
     Route: 065

REACTIONS (1)
  - Cardiac failure [Recovering/Resolving]

NARRATIVE: CASE EVENT DATE: 20181213
